FAERS Safety Report 5395791-X (Version None)
Quarter: 2007Q3

REPORT INFORMATION
  Report Type: 
  Country: None (occurrence: None)
  Receive Date: 20070724
  Receipt Date: 20070712
  Transmission Date: 20080115
  Serious: Yes (Death, Disabling, Other)
  Sender: FDA-Public Use
  Company Number: US-PFIZER INC-2005098316

PATIENT
  Sex: Female
  Weight: 93.9 kg

DRUGS (11)
  1. CELEBREX [Suspect]
     Dates: start: 20040901, end: 20050701
  2. VIOXX [Suspect]
     Indication: ARTHRITIS
     Dates: start: 20020601, end: 20040901
  3. VIOXX [Suspect]
     Indication: OSTEITIS
  4. VIOXX [Suspect]
  5. ASPIRIN [Concomitant]
  6. BENICAR [Concomitant]
  7. LASIX [Concomitant]
  8. ADVAIR DISKUS 100/50 [Concomitant]
  9. ALBUTEROL [Concomitant]
  10. CRESTOR [Concomitant]
  11. SYNTHROID [Concomitant]

REACTIONS (10)
  - CARDIAC DISORDER [None]
  - CARDIOVASCULAR DISORDER [None]
  - CEREBROVASCULAR ACCIDENT [None]
  - CORONARY ARTERY OCCLUSION [None]
  - DEATH [None]
  - DEPRESSION [None]
  - MUSCULAR WEAKNESS [None]
  - MYOCARDIAL INFARCTION [None]
  - POST-TRAUMATIC STRESS DISORDER [None]
  - THROMBOSIS [None]
